FAERS Safety Report 18045051 (Version 3)
Quarter: 2021Q1

REPORT INFORMATION
  Report Type: Spontaneous
  Country: FR (occurrence: FR)
  Receive Date: 20200720
  Receipt Date: 20210202
  Transmission Date: 20210419
  Serious: Yes (Hospitalization)
  Sender: FDA-Public Use
  Company Number: FR-009507513-2007FRA005236

PATIENT
  Age: 91 Year
  Sex: Female

DRUGS (3)
  1. VANCOMYCIN [Suspect]
     Active Substance: VANCOMYCIN
     Indication: INFECTION
     Route: 042
     Dates: start: 20200616
  2. VANCOMYCIN [Suspect]
     Active Substance: VANCOMYCIN
     Indication: CLOSTRIDIUM DIFFICILE COLITIS
  3. ZINPLAVA [Suspect]
     Active Substance: BEZLOTOXUMAB
     Indication: CLOSTRIDIAL INFECTION
     Dosage: 464 MILLIGRAM  (STRENGTH: 25 MG/ML)
     Route: 042
     Dates: start: 20200619

REACTIONS (1)
  - Pancreatitis acute [Recovered/Resolved]

NARRATIVE: CASE EVENT DATE: 20200620
